FAERS Safety Report 24325605 (Version 1)
Quarter: 2024Q3

REPORT INFORMATION
  Report Type: Spontaneous
  Country: US (occurrence: US)
  Receive Date: 20240917
  Receipt Date: 20240917
  Transmission Date: 20241017
  Serious: No
  Sender: ROCHE
  Company Number: US-ROCHE-10000075360

PATIENT
  Sex: Female

DRUGS (1)
  1. ACTEMRA [Suspect]
     Active Substance: TOCILIZUMAB
     Indication: Product used for unknown indication
     Dosage: 162MG AUTO INJECTOR
     Route: 058
     Dates: start: 20240826

REACTIONS (9)
  - Product dose omission issue [Unknown]
  - Product knowledge deficit [Unknown]
  - Device defective [Unknown]
  - Device difficult to use [Unknown]
  - Glaucoma [Unknown]
  - Epistaxis [Unknown]
  - Renal impairment [Unknown]
  - Back disorder [Unknown]
  - Spinal stenosis [Unknown]

NARRATIVE: CASE EVENT DATE: 20240902
